FAERS Safety Report 6728800-3 (Version None)
Quarter: 2010Q2

REPORT INFORMATION
  Report Type: 
  Country: None (occurrence: None)
  Receive Date: 20100517
  Receipt Date: 20100216
  Transmission Date: 20101027
  Serious: No
  Sender: FDA-Public Use
  Company Number: US-ABBOTT-10P-163-0625562-00

PATIENT
  Sex: Female
  Weight: 63.56 kg

DRUGS (3)
  1. SIMCOR [Suspect]
     Indication: BLOOD CHOLESTEROL INCREASED
     Dosage: LOWER DOSE
     Dates: start: 20070101, end: 20090101
  2. SIMCOR [Suspect]
     Dosage: 1000/20 MG
     Dates: start: 20090101
  3. FOSAMAX [Concomitant]
     Indication: OSTEOPOROSIS PROPHYLAXIS

REACTIONS (1)
  - FLUSHING [None]
